FAERS Safety Report 4376975-6 (Version None)
Quarter: 2004Q2

REPORT INFORMATION
  Report Type: 
  Country: None (occurrence: None)
  Receive Date: 20040614
  Receipt Date: 20030113
  Transmission Date: 20050107
  Serious: Yes (Death, Other)
  Sender: FDA-Public Use
  Company Number: US-MERCK-0301USA01102

PATIENT
  Age: 54 Year
  Sex: Female
  Weight: 64 kg

DRUGS (2)
  1. FEMHRT [Concomitant]
     Indication: HORMONE REPLACEMENT THERAPY
     Route: 065
     Dates: start: 20001101, end: 20020907
  2. VIOXX [Suspect]
     Indication: ARTHRITIS
     Route: 048
     Dates: start: 20010826, end: 20020907

REACTIONS (8)
  - CARDIO-RESPIRATORY ARREST [None]
  - DEEP VEIN THROMBOSIS [None]
  - DIVERTICULUM [None]
  - FINGER DEFORMITY [None]
  - HEPATIC CYST [None]
  - PERIPHERAL EMBOLISM [None]
  - RENAL FAILURE ACUTE [None]
  - UTERINE LEIOMYOMA [None]
